FAERS Safety Report 20560223 (Version 1)
Quarter: 2022Q1

REPORT INFORMATION
  Report Type: Spontaneous
  Country: US (occurrence: US)
  Receive Date: 20220307
  Receipt Date: 20220307
  Transmission Date: 20220423
  Serious: No
  Sender: FDA-Public Use
  Company Number: US-GALDERMA-US2022001837

PATIENT

DRUGS (4)
  1. PROACTIV MD ADAPALENE ACNE TREATMENT [Suspect]
     Active Substance: ADAPALENE
     Indication: Acne
     Dosage: 1 DOSAGE FORM, QD
     Route: 061
     Dates: start: 20211210, end: 202112
  2. Proactiv MD Ultra Gentle Cleanser [Concomitant]
     Indication: Acne
     Dosage: 1 DOSAGE FORM, QOD
     Route: 061
     Dates: start: 20211210, end: 202112
  3. Proactiv MD Ultra Hydrating Moisturizer [Concomitant]
     Indication: Acne
     Dosage: 1 DOSAGE FORM, QOD
     Route: 061
     Dates: start: 20211210, end: 202112
  4. PROACTIV ACNE BODY WASH [Concomitant]
     Active Substance: SALICYLIC ACID
     Indication: Acne
     Dosage: 1 DOSAGE FORM, QOD
     Route: 061
     Dates: start: 20211210, end: 202112

REACTIONS (2)
  - Skin irritation [Recovered/Resolved]
  - Skin burning sensation [Recovered/Resolved]

NARRATIVE: CASE EVENT DATE: 20211201
